FAERS Safety Report 25699850 (Version 1)
Quarter: 2025Q3

REPORT INFORMATION
  Report Type: Spontaneous
  Country: JP (occurrence: JP)
  Receive Date: 20250819
  Receipt Date: 20250819
  Transmission Date: 20251021
  Serious: Yes (Death, Other)
  Sender: AMGEN
  Company Number: JP-AMGEN-JPNSP2025161745

PATIENT

DRUGS (2)
  1. BEVACIZUMAB [Suspect]
     Active Substance: BEVACIZUMAB
     Indication: Hepatocellular carcinoma
     Dosage: 15 MILLIGRAM/KILOGRAM, Q3WK
     Route: 065
  2. ATEZOLIZUMAB [Concomitant]
     Active Substance: ATEZOLIZUMAB
     Indication: Hepatocellular carcinoma

REACTIONS (11)
  - Death [Fatal]
  - Hepatocellular carcinoma [Unknown]
  - Anastomotic leak [Unknown]
  - Adverse event [Unknown]
  - Upper gastrointestinal haemorrhage [Unknown]
  - Encephalopathy [Unknown]
  - Drug effective for unapproved indication [Unknown]
  - Post procedural bile leak [Unknown]
  - Post procedural infection [Unknown]
  - Post procedural complication [Unknown]
  - Haemoptysis [Unknown]
